FAERS Safety Report 6614514-7 (Version None)
Quarter: 2010Q1

REPORT INFORMATION
  Report Type: 
  Country: None (occurrence: None)
  Receive Date: 20100304
  Receipt Date: 20100302
  Transmission Date: 20100710
  Serious: Yes (Life-Threatening, Hospitalization)
  Sender: FDA-Public Use
  Company Number: FR-MERCK-0911FRA00030

PATIENT
  Age: 57 Year
  Sex: Male
  Weight: 64 kg

DRUGS (10)
  1. JANUVIA [Suspect]
     Indication: TYPE 2 DIABETES MELLITUS
     Route: 048
     Dates: start: 20090801, end: 20090915
  2. METFORMIN [Suspect]
     Indication: TYPE 2 DIABETES MELLITUS
     Route: 048
     Dates: start: 20090701, end: 20090915
  3. HYDROCHLOROTHIAZIDE AND IRBESARTAN [Suspect]
     Indication: HYPERTENSION
     Route: 048
     Dates: end: 20090915
  4. ESCITALOPRAM OXALATE [Suspect]
     Route: 048
     Dates: end: 20090915
  5. ESOMEPRAZOLE MAGNESIUM [Concomitant]
     Route: 065
  6. CLONAZEPAM [Concomitant]
     Route: 065
  7. POTASSIUM CHLORIDE [Concomitant]
     Route: 065
  8. FENOFIBRATE [Concomitant]
     Route: 065
  9. ACEPROMAZINE AND ACEPROMETAZINE AND CLORAZEPATE DIPOTASSIUM [Concomitant]
     Route: 065
  10. ALPRAZOLAM [Concomitant]
     Route: 065

REACTIONS (6)
  - ASTHENIA [None]
  - DIARRHOEA [None]
  - HYPERKALAEMIA [None]
  - NAUSEA [None]
  - RENAL FAILURE ACUTE [None]
  - VOMITING [None]
